FAERS Safety Report 9198881 (Version 1)
Quarter: 2013Q1

REPORT INFORMATION
  Report Type: Spontaneous
  Country: JP (occurrence: None)
  Receive Date: 20130327
  Receipt Date: 20130327
  Transmission Date: 20140127
  Serious: Yes (Death)
  Sender: FDA-Public Use
  Company Number: 2013-04842

PATIENT
  Age: 9 Year
  Sex: Male
  Weight: 40 kg

DRUGS (8)
  1. PREDNISONE [Suspect]
     Indication: CENTRAL NERVOUS SYSTEM LYMPHOMA
  2. VINCRISTINE [Suspect]
     Indication: CENTRAL NERVOUS SYSTEM LYMPHOMA
     Dosage: 1.5 MG/M2 ON DAYS 8, 15, 22 AND 29, UNKNOWN
  3. CYCLOPHOSPHAMIDE [Suspect]
     Indication: CENTRAL NERVOUS SYSTEM LYMPHOMA
     Dosage: 1.0 G/M2 ON DAY 8, UNKNOWN
  4. METHOTREXATE [Suspect]
     Indication: CENTRAL NERVOUS SYSTEM LYMPHOMA
     Dosage: 12.5 MG ON DAYS 1, 15 AND 29, INTRATHECAL
  5. CYTARABINE [Suspect]
     Indication: CENTRAL NERVOUS SYSTEM LYMPHOMA
     Dosage: 25 MG ON DAYS 1, 15, 29, INTRATHECAL
  6. HYDROCORTISONE [Suspect]
     Indication: CENTRAL NERVOUS SYSTEM LYMPHOMA
     Dosage: 25 MG ON DAYS 1, 15, 29, INTRATHECAL
  7. DAUNORUBICIN [Suspect]
     Indication: CENTRAL NERVOUS SYSTEM LYMPHOMA
     Dosage: 40 MG/M2 ON DAYS 8, 15 AND 22, UNKNOWN
  8. L-ASPARAGINASE [Suspect]
     Indication: CENTRAL NERVOUS SYSTEM LYMPHOMA
     Dosage: 6000 U/M2 ON DAYS 9, 11, 13, 16, 18, 20, 23, 25 AND 27

REACTIONS (6)
  - Venoocclusive liver disease [None]
  - Brain herniation [None]
  - Weight increased [None]
  - Thrombocytopenia [None]
  - Bradycardia [None]
  - Haemorrhage intracranial [None]
